FAERS Safety Report 6626717-6 (Version None)
Quarter: 2010Q1

REPORT INFORMATION
  Report Type: 
  Country: None (occurrence: None)
  Receive Date: 20100308
  Receipt Date: 20100224
  Transmission Date: 20100710
  Serious: Yes (Hospitalization)
  Sender: FDA-Public Use
  Company Number: 005775

PATIENT
  Sex: Female
  Weight: 64 kg

DRUGS (12)
  1. CERTOLIZUMAB PEGOL (CERTOLIZUMAB PEGOL) [Suspect]
     Indication: RHEUMATOID ARTHRITIS
     Dosage: (200 MG 1X/2 WEEKS SUBCUTANEOUS)
     Route: 058
     Dates: start: 20091126, end: 20100107
  2. DICLOFENAC [Concomitant]
  3. METAMIZOLE [Concomitant]
  4. FOLIC ACID [Concomitant]
  5. RANITIC [Concomitant]
  6. MAGNESIUM VERLA /02089401/ [Concomitant]
  7. CALCIUM W/VITAMIN D /00188401/ [Concomitant]
  8. DEKRISTOL [Concomitant]
  9. METEX [Concomitant]
  10. SULFASALAZINE [Concomitant]
  11. PREDNISOLON /00016201/ [Concomitant]
  12. PROMETHAZINE [Concomitant]

REACTIONS (3)
  - INTERVERTEBRAL DISC PROTRUSION [None]
  - LYMPHADENOPATHY [None]
  - TUBERCULOSIS [None]
